FAERS Safety Report 4997219-8 (Version None)
Quarter: 2006Q2

REPORT INFORMATION
  Report Type: 
  Country: None (occurrence: None)
  Receive Date: 20060505
  Receipt Date: 20060505
  Transmission Date: 20061013
  Serious: Yes (Life-Threatening, Hospitalization)
  Sender: FDA-Public Use
  Company Number: None

PATIENT
  Age: 86 Year
  Sex: Male
  Weight: 81 kg

DRUGS (11)
  1. GLYBURIDE [Suspect]
     Indication: DIABETES MELLITUS
     Dosage: 2.5 MG    DAILY   PO
     Route: 048
  2. ALBUTEROL SULFATE AUTOHALER [Concomitant]
  3. LASIX [Concomitant]
  4. GATIFLOXACIN [Concomitant]
  5. WARFARIN SODIUM [Concomitant]
  6. ASPIRIN [Concomitant]
  7. BISACODYL [Concomitant]
  8. LISINOPRIL [Concomitant]
  9. METHOCARBAMOL [Concomitant]
  10. RANITIDINE [Concomitant]
  11. TERAZOCIN [Concomitant]

REACTIONS (11)
  - AGITATION [None]
  - BELLIGERENCE [None]
  - BLOOD CREATININE INCREASED [None]
  - BLOOD GLUCOSE DECREASED [None]
  - CONFUSIONAL STATE [None]
  - CONVULSION [None]
  - DISORIENTATION [None]
  - DRUG CLEARANCE DECREASED [None]
  - HYPOGLYCAEMIA [None]
  - LOSS OF CONSCIOUSNESS [None]
  - SYNCOPE [None]
